FAERS Safety Report 5046886-1 (Version None)
Quarter: 2006Q2

REPORT INFORMATION
  Report Type: 
  Country: None (occurrence: None)
  Receive Date: 20060630
  Receipt Date: 20060619
  Transmission Date: 20061013
  Serious: Yes (Other)
  Sender: FDA-Public Use
  Company Number: ENT 2006-0083

PATIENT
  Age: 77 Year
  Sex: Male

DRUGS (10)
  1. COMTAN [Suspect]
     Indication: PARKINSON'S DISEASE
     Dosage: 600 MG (200 MG, 3 IN 1 D) ORAL
     Route: 048
  2. REMERON [Suspect]
     Dosage: 30 MG
  3. AVAPRO [Concomitant]
  4. COREG [Concomitant]
  5. LASIX [Concomitant]
  6. ALDACTONE [Concomitant]
  7. ASPIRIN [Concomitant]
  8. PLAVIX [Concomitant]
  9. ATORVASTATIN CALCIUM [Concomitant]
  10. SINEMET [Concomitant]

REACTIONS (3)
  - DRUG INTERACTION [None]
  - IMPLANTABLE DEFIBRILLATOR MALFUNCTION [None]
  - VENTRICULAR TACHYCARDIA [None]
